FAERS Safety Report 6899450-3 (Version None)
Quarter: 2010Q3

REPORT INFORMATION
  Report Type: 
  Country: None (occurrence: None)
  Receive Date: 20100803
  Receipt Date: 20091019
  Transmission Date: 20110219
  Serious: No
  Sender: FDA-Public Use
  Company Number: US-PFIZER INC-2007074255

PATIENT
  Sex: Female
  Weight: 59.41 kg

DRUGS (2)
  1. LYRICA [Suspect]
     Indication: HERPES ZOSTER
     Dosage: 150 MG, 2X/DAY
     Dates: start: 20070523, end: 20070910
  2. TYLENOL [Concomitant]
     Dosage: UNK

REACTIONS (10)
  - BALANCE DISORDER [None]
  - DRUG INEFFECTIVE [None]
  - DYSPHONIA [None]
  - HYPOAESTHESIA EYE [None]
  - OEDEMA PERIPHERAL [None]
  - PAIN [None]
  - POST HERPETIC NEURALGIA [None]
  - PRURITUS [None]
  - RASH [None]
  - WEIGHT INCREASED [None]
